FAERS Safety Report 14511812 (Version 2)
Quarter: 2018Q1

REPORT INFORMATION
  Report Type: Spontaneous
  Country: SA (occurrence: SA)
  Receive Date: 20180209
  Receipt Date: 20180215
  Transmission Date: 20180509
  Serious: Yes (Hospitalization)
  Sender: FDA-Public Use
  Company Number: PHHY2018SA018909

PATIENT
  Age: 22 Year
  Sex: Male

DRUGS (2)
  1. DEXTROSE SALINE [Suspect]
     Active Substance: DEXTROSE\SODIUM CHLORIDE
     Indication: PYREXIA
     Dosage: UNK
     Route: 042
  2. MEGION [Suspect]
     Active Substance: CEFTRIAXONE SODIUM
     Indication: PYREXIA
     Dosage: 1 G, UNK
     Route: 042

REACTIONS (5)
  - Pyrexia [Unknown]
  - Hypersensitivity [Unknown]
  - Periorbital oedema [Unknown]
  - Oropharyngeal pain [Unknown]
  - Dyspnoea [Unknown]
